FAERS Safety Report 21653571 (Version 1)
Quarter: 2022Q4

REPORT INFORMATION
  Report Type: Report from Study
  Country: FR (occurrence: FR)
  Receive Date: 20221129
  Receipt Date: 20221129
  Transmission Date: 20230112
  Serious: Yes (Hospitalization)
  Sender: FDA-Public Use
  Company Number: FR-SUN PHARMACEUTICAL INDUSTRIES LTD-2022RR-366334

PATIENT
  Age: 44 Year
  Sex: Female
  Weight: 70 kg

DRUGS (6)
  1. VENLAFAXINE [Suspect]
     Active Substance: VENLAFAXINE HYDROCHLORIDE
     Indication: Antidepressant therapy
     Dosage: UNK
     Route: 065
  2. PREGABALIN [Suspect]
     Active Substance: PREGABALIN
     Indication: Neurodermatitis
     Dosage: UNK
     Route: 065
  3. METHOTREXATE [Suspect]
     Active Substance: METHOTREXATE
     Indication: Spinal osteoarthritis
     Dosage: 15 MILLIGRAM, WEEKLY
     Route: 065
     Dates: start: 2000
  4. METHOTREXATE [Suspect]
     Active Substance: METHOTREXATE
     Indication: Neurodermatitis
     Dosage: 25 MILLIGRAM, WEEKLY
     Route: 065
     Dates: start: 201812
  5. TACROLIMUS [Suspect]
     Active Substance: TACROLIMUS
     Indication: Neurodermatitis
     Dosage: UNK
     Route: 061
  6. ALITRETINOIN [Suspect]
     Active Substance: ALITRETINOIN
     Indication: Neurodermatitis
     Dosage: 30 MILLIGRAM, DAILY
     Route: 065
     Dates: start: 201906

REACTIONS (3)
  - Therapeutic product effect incomplete [Unknown]
  - Hypercholesterolaemia [Unknown]
  - Hypertriglyceridaemia [Unknown]
